FAERS Safety Report 9243180 (Version 1)
Quarter: 2013Q2

REPORT INFORMATION
  Report Type: Spontaneous
  Country: US (occurrence: US)
  Receive Date: 20130419
  Receipt Date: 20130419
  Transmission Date: 20140414
  Serious: Yes (Hospitalization)
  Sender: FDA-Public Use
  Company Number: US-ASTRAZENECA-2013SE24856

PATIENT
  Age: 52 Year
  Sex: Male
  Weight: 88.5 kg

DRUGS (9)
  1. NEXIUM [Suspect]
     Indication: GASTROOESOPHAGEAL REFLUX DISEASE
     Dosage: DAILY
     Route: 048
  2. NEXIUM [Suspect]
     Indication: GASTRIC ULCER
     Dosage: DAILY
     Route: 048
  3. NEXIUM [Suspect]
     Indication: OESOPHAGEAL ULCER
     Dosage: DAILY
     Route: 048
  4. LISINOPRIL [Suspect]
     Indication: ARRHYTHMIA
     Route: 048
  5. OMEPRAZOLE [Suspect]
     Indication: GASTROOESOPHAGEAL REFLUX DISEASE
     Route: 048
     Dates: start: 201210
  6. LIPITOR [Concomitant]
     Indication: BLOOD CHOLESTEROL ABNORMAL
     Route: 048
  7. COREG [Concomitant]
     Indication: CARDIAC DISORDER
     Route: 048
  8. LAMOTRIGINE [Concomitant]
     Indication: MIGRAINE
     Route: 048
  9. ONDANFETRON HCL [Concomitant]
     Indication: NAUSEA
     Route: 048

REACTIONS (4)
  - Arrhythmia [Recovering/Resolving]
  - Cardiac disorder [Unknown]
  - Drug ineffective [Unknown]
  - Off label use [Recovered/Resolved]
